FAERS Safety Report 20047310 (Version 1)
Quarter: 2021Q4

REPORT INFORMATION
  Report Type: Spontaneous
  Country: US (occurrence: US)
  Receive Date: 20211109
  Receipt Date: 20211109
  Transmission Date: 20220303
  Serious: No
  Sender: FDA-Public Use
  Company Number: US-CIPLA LTD.-2021US06036

PATIENT

DRUGS (4)
  1. GABAPENTIN [Suspect]
     Active Substance: GABAPENTIN
     Indication: Post herpetic neuralgia
     Dosage: 1 CAPSULE ON THE FIRST DAY
     Route: 065
     Dates: start: 20210825
  2. GABAPENTIN [Suspect]
     Active Substance: GABAPENTIN
     Dosage: 2 CAPSULES ON THE SECOND DAY
     Route: 065
     Dates: start: 20210826
  3. GABAPENTIN [Suspect]
     Active Substance: GABAPENTIN
     Dosage: 3 CAPSULES PER DAY
     Route: 065
     Dates: start: 20210827
  4. OMEPRAZOLE [Concomitant]
     Active Substance: OMEPRAZOLE
     Indication: Gastrooesophageal reflux disease
     Dosage: UNK
     Route: 065

REACTIONS (2)
  - Drug intolerance [Unknown]
  - Dizziness [Unknown]

NARRATIVE: CASE EVENT DATE: 20210801
